FAERS Safety Report 23541888 (Version 3)
Quarter: 2024Q1

REPORT INFORMATION
  Report Type: Other
  Country: MX (occurrence: None)
  Receive Date: 20240220
  Receipt Date: 20240322
  Transmission Date: 20240410
  Serious: Yes (Disabling)
  Sender: FDA-Public Use
  Company Number: MX-ROCHE-3507334

PATIENT
  Age: 37 Year
  Sex: Female
  Weight: 52 kg

DRUGS (4)
  1. OCREVUS [Suspect]
     Active Substance: OCRELIZUMAB
     Indication: Multiple sclerosis
     Route: 042
     Dates: start: 20190620
  2. BOTULINUM TOXIN NOS [Concomitant]
     Active Substance: BOTULINUM TOXIN NOS
     Indication: Migraine
  3. IBUPROFEN [Concomitant]
     Active Substance: IBUPROFEN
     Indication: Headache
  4. SERTRALINE [Concomitant]
     Active Substance: SERTRALINE HYDROCHLORIDE

REACTIONS (9)
  - Depression [Recovering/Resolving]
  - Anxiety [Recovering/Resolving]
  - Feeling of despair [Not Recovered/Not Resolved]
  - Depressed mood [Not Recovered/Not Resolved]
  - Crying [Not Recovered/Not Resolved]
  - Somnolence [Not Recovered/Not Resolved]
  - Fatigue [Not Recovered/Not Resolved]
  - Stress [Not Recovered/Not Resolved]
  - Anger [Not Recovered/Not Resolved]

NARRATIVE: CASE EVENT DATE: 20200101
